FAERS Safety Report 16179215 (Version 1)
Quarter: 2019Q2

REPORT INFORMATION
  Report Type: Spontaneous
  Country: US (occurrence: US)
  Receive Date: 20190307
  Receipt Date: 20190307
  Transmission Date: 20190711
  Serious: Yes (Hospitalization)
  Sender: FDA-Public Use
  Company Number: None

PATIENT
  Age: 8 Month
  Sex: Male
  Weight: 8.81 kg

DRUGS (2)
  1. VIGABATRIN 500MG POWDER [Suspect]
     Active Substance: VIGABATRIN
     Indication: EPILEPSY
     Route: 048
     Dates: start: 20181020
  2. CLOBAZAM. [Concomitant]
     Active Substance: CLOBAZAM

REACTIONS (2)
  - Disease complication [None]
  - Seizure [None]

NARRATIVE: CASE EVENT DATE: 20190305
